FAERS Safety Report 21675989 (Version 2)
Quarter: 2022Q4

REPORT INFORMATION
  Report Type: Spontaneous
  Country: US (occurrence: US)
  Receive Date: 20221202
  Receipt Date: 20221207
  Transmission Date: 20230113
  Serious: No
  Sender: FDA-Public Use
  Company Number: US-NOVOPROD-799588

PATIENT
  Sex: Female

DRUGS (2)
  1. NOVOLIN R [Suspect]
     Active Substance: INSULIN HUMAN
     Indication: Type 2 diabetes mellitus
     Dosage: UNK
     Route: 058
  2. NOVOLIN N [Suspect]
     Active Substance: INSULIN HUMAN
     Indication: Type 2 diabetes mellitus
     Dosage: 35 UNITS IN AM AND IN PM 1/3 OF THE CARBS EATEN, 1 UNIT FOR EVERY 10 COUNT OVER 150 MG/DL
     Route: 058

REACTIONS (2)
  - Weight decreased [Unknown]
  - Blood glucose increased [Unknown]
